FAERS Safety Report 24006221 (Version 1)
Quarter: 2024Q2

REPORT INFORMATION
  Report Type: Spontaneous
  Country: IT (occurrence: IT)
  Receive Date: 20240624
  Receipt Date: 20240624
  Transmission Date: 20240715
  Serious: Yes (Hospitalization)
  Sender: FDA-Public Use
  Company Number: IT-LEO Pharma-371329

PATIENT
  Sex: Female

DRUGS (3)
  1. PROTOPIC [Suspect]
     Active Substance: TACROLIMUS
     Indication: Dermatitis
     Dosage: FOR THE FIRST TWO WEEKS ONCE A DAY ON ALTERNATE DAYS
     Route: 003
     Dates: start: 202403
  2. PROTOPIC [Suspect]
     Active Substance: TACROLIMUS
     Indication: Dermatitis
     Dosage: IN THE THIRD WEEK ONCE A DAY TWICE A WEEK
     Route: 003
  3. DUPIXENT [Concomitant]
     Active Substance: DUPILUMAB
     Indication: Product used for unknown indication

REACTIONS (2)
  - Application site swelling [Recovered/Resolved]
  - Application site erythema [Recovered/Resolved]
